FAERS Safety Report 6224811-5 (Version None)
Quarter: 2009Q2

REPORT INFORMATION
  Report Type: 
  Country: None (occurrence: None)
  Receive Date: 20090612
  Receipt Date: 20090327
  Transmission Date: 20091009
  Serious: No
  Sender: FDA-Public Use
  Company Number: US-ABBOTT-09P-163-0565424-00

PATIENT
  Sex: Female

DRUGS (1)
  1. HUMIRA [Suspect]
     Indication: PSORIASIS
     Dates: start: 20090219

REACTIONS (4)
  - IMPAIRED HEALING [None]
  - INFECTION [None]
  - OEDEMA PERIPHERAL [None]
  - SKIN NODULE [None]
